FAERS Safety Report 9046989 (Version 3)
Quarter: 2013Q1

REPORT INFORMATION
  Report Type: Report from Study
  Country: US (occurrence: US)
  Receive Date: 20130130
  Receipt Date: 20130306
  Transmission Date: 20140127
  Serious: Yes (Other)
  Sender: FDA-Public Use
  Company Number: US-BAYER-2012-133602

PATIENT
  Age: 65 Year
  Sex: Female
  Weight: 84.81 kg

DRUGS (6)
  1. STIVARGA [Suspect]
     Indication: RECTAL CANCER
     Dosage: 160 MG (4 TABLETS DAILY), QD
     Route: 048
     Dates: start: 20121203
  2. STIVARGA [Suspect]
     Indication: RECTAL CANCER
     Dosage: 160 MG (4 TABLETS DAILY), QD
     Route: 048
     Dates: start: 20121231, end: 20130103
  3. PHENERGAN [PROMETHAZINE] [Concomitant]
     Dosage: 25 MG
  4. PANTOPRAZOLE [Concomitant]
     Dosage: 20 MG
  5. ZOLPIDEM [Concomitant]
     Dosage: 5 MG
  6. FUROSEMIDE [Concomitant]
     Dosage: 20 MG

REACTIONS (17)
  - Confusional state [Not Recovered/Not Resolved]
  - Aphasia [Not Recovered/Not Resolved]
  - Haemoptysis [Recovered/Resolved]
  - Ocular icterus [None]
  - Fatigue [Not Recovered/Not Resolved]
  - Asthenia [Recovering/Resolving]
  - Rash erythematous [Recovered/Resolved]
  - Dysphonia [Not Recovered/Not Resolved]
  - Thermohyperaesthesia [Not Recovered/Not Resolved]
  - Feeling hot [Recovered/Resolved]
  - Muscle spasms [Recovered/Resolved]
  - Vomiting [Recovered/Resolved]
  - Diarrhoea [Recovered/Resolved]
  - Stomatitis [Unknown]
  - Swollen tongue [Unknown]
  - Nausea [Recovered/Resolved]
  - Alopecia [None]
